FAERS Safety Report 6124399-3 (Version None)
Quarter: 2009Q1

REPORT INFORMATION
  Report Type: 
  Country: None (occurrence: None)
  Receive Date: 20090319
  Receipt Date: 20090304
  Transmission Date: 20090719
  Serious: Yes (Other)
  Sender: FDA-Public Use
  Company Number: GB-GENENTECH-279107

PATIENT
  Age: 59 Year
  Sex: Male

DRUGS (1)
  1. AVASTIN [Suspect]
     Indication: CHORIORETINOPATHY
     Dosage: 1.25 MG, UNK
     Route: 047
     Dates: start: 20090126

REACTIONS (1)
  - DERMATITIS ALLERGIC [None]
